FAERS Safety Report 5072524-8 (Version None)
Quarter: 2006Q3

REPORT INFORMATION
  Report Type: 
  Country: None (occurrence: None)
  Receive Date: 20060807
  Receipt Date: 20060727
  Transmission Date: 20061208
  Serious: Yes (Hospitalization)
  Sender: FDA-Public Use
  Company Number: FR-BRISTOL-MYERS SQUIBB COMPANY-13459110

PATIENT
  Age: 63 Year
  Sex: Female

DRUGS (5)
  1. ABILIFY [Suspect]
     Indication: SCHIZOPHRENIA
     Route: 048
     Dates: end: 20060607
  2. AMLODIPINE BESYLATE [Concomitant]
  3. TERCIAN [Concomitant]
  4. COVERSYL [Concomitant]
  5. TRILEPTAL [Concomitant]

REACTIONS (3)
  - DEPRESSED LEVEL OF CONSCIOUSNESS [None]
  - DRUG ADMINISTRATION ERROR [None]
  - ELECTROENCEPHALOGRAM ABNORMAL [None]
